FAERS Safety Report 6299885-6 (Version None)
Quarter: 2009Q3

REPORT INFORMATION
  Report Type: 
  Country: None (occurrence: None)
  Receive Date: 20090806
  Receipt Date: 20090727
  Transmission Date: 20100115
  Serious: Yes (Hospitalization)
  Sender: FDA-Public Use
  Company Number: PHHY2009NO21047

PATIENT
  Age: 73 Year
  Sex: Female

DRUGS (3)
  1. EXFORGE [Suspect]
     Indication: HYPERTENSION
     Dosage: 160/5 MG PER DAY
     Route: 048
     Dates: start: 20090219, end: 20090407
  2. LEVOTHYROXINE SODIUM [Concomitant]
     Indication: HYPOTHYROIDISM
     Dosage: 100 UG, DAILY
  3. ESTRIOL [Concomitant]
     Indication: MENOPAUSE
     Dosage: 1 MG DAILY

REACTIONS (4)
  - ARTHRALGIA [None]
  - BACK PAIN [None]
  - BLADDER PAIN [None]
  - POLYMYALGIA RHEUMATICA [None]
